FAERS Safety Report 4921282-3 (Version None)
Quarter: 2006Q1

REPORT INFORMATION
  Report Type: 
  Country: None (occurrence: None)
  Receive Date: 20060221
  Receipt Date: 20060214
  Transmission Date: 20060701
  Serious: Yes (Life-Threatening, Hospitalization)
  Sender: FDA-Public Use
  Company Number: 2005023442

PATIENT
  Age: 66 Year
  Sex: Female

DRUGS (2)
  1. CARDURA XL [Suspect]
     Indication: ILL-DEFINED DISORDER
     Dosage: (4 MG), ORAL
     Route: 048
     Dates: start: 20030201
  2. CANDESARTAN (CANDESARTAN) [Concomitant]

REACTIONS (5)
  - ADENOCARCINOMA [None]
  - HYPOTENSION [None]
  - OBSTRUCTION GASTRIC [None]
  - UNEVALUABLE EVENT [None]
  - VOMITING [None]
